FAERS Safety Report 6536907-9 (Version None)
Quarter: 2010Q1

REPORT INFORMATION
  Report Type: 
  Country: None (occurrence: None)
  Receive Date: 20100105
  Receipt Date: 20091222
  Transmission Date: 20100710
  Serious: Yes (Hospitalization)
  Sender: FDA-Public Use
  Company Number: CERZ-1001081

PATIENT
  Age: 64 Year
  Sex: Male

DRUGS (1)
  1. CEREZYME [Suspect]
     Indication: GAUCHER'S DISEASE
     Dosage: INTRAVENOUS
     Route: 042
     Dates: start: 20090501

REACTIONS (3)
  - FLUSHING [None]
  - HYPOTENSION [None]
  - INFUSION RELATED REACTION [None]
